FAERS Safety Report 9263870 (Version 1)
Quarter: 2013Q2

REPORT INFORMATION
  Report Type: Spontaneous
  Country: US (occurrence: US)
  Receive Date: 20130430
  Receipt Date: 20130430
  Transmission Date: 20140414
  Serious: No
  Sender: FDA-Public Use
  Company Number: US-PFIZER INC-2013131169

PATIENT
  Age: 47 Year
  Sex: Male

DRUGS (1)
  1. RAPAMUNE [Suspect]
     Indication: LYMPHOMA
     Dosage: 0.5 MG, 1X/DAY

REACTIONS (2)
  - Hypersensitivity [Unknown]
  - Off label use [Unknown]
